FAERS Safety Report 16714745 (Version 1)
Quarter: 2019Q3

REPORT INFORMATION
  Report Type: Spontaneous
  Country: FR (occurrence: FR)
  Receive Date: 20190819
  Receipt Date: 20190819
  Transmission Date: 20191004
  Serious: Yes (Other)
  Sender: FDA-Public Use
  Company Number: PHHY2019FR192059

PATIENT
  Age: 79 Year

DRUGS (2)
  1. CEFTRIAXONE. [Suspect]
     Active Substance: CEFTRIAXONE
     Indication: ARTHRITIS INFECTIVE
     Dosage: 1 G, QD
     Route: 058
  2. CEFTRIAXONE. [Suspect]
     Active Substance: CEFTRIAXONE
     Indication: ESCHERICHIA INFECTION

REACTIONS (4)
  - Hepatitis cholestatic [Unknown]
  - Treatment failure [Unknown]
  - Product use in unapproved indication [Unknown]
  - Klebsiella infection [Unknown]
